FAERS Safety Report 15536686 (Version 1)
Quarter: 2018Q4

REPORT INFORMATION
  Report Type: Report from Study
  Country: AU (occurrence: AU)
  Receive Date: 20181022
  Receipt Date: 20181022
  Transmission Date: 20190205
  Serious: Yes (Hospitalization)
  Sender: FDA-Public Use
  Company Number: AU-ROCHE-2201380

PATIENT
  Age: 90 Year
  Sex: Female
  Weight: 70 kg

DRUGS (4)
  1. LABETALOL [Concomitant]
     Active Substance: LABETALOL\LABETALOL HYDROCHLORIDE
     Dosage: DAILY DOSE: 10-20MG
     Route: 065
     Dates: start: 20180926, end: 20180926
  2. TENECTEPLASE [Suspect]
     Active Substance: TENECTEPLASE
     Indication: ISCHAEMIC STROKE
     Dosage: FORMULATION: 50MG/10ML (3,5 ML)?DATE OF LAST ADMINISTRATION PRIOR TO SAE: 26/SEP/2018;13:17
     Route: 042
     Dates: start: 20180926
  3. PARACETAMOL [Concomitant]
     Active Substance: ACETAMINOPHEN
     Dosage: 4 GM (1 GM,QID)
     Route: 042
     Dates: start: 20180926, end: 20180927
  4. PARACETAMOL [Concomitant]
     Active Substance: ACETAMINOPHEN
     Dosage: 4 GM (1 GM,QID)
     Route: 048

REACTIONS (1)
  - Vascular pseudoaneurysm [Recovered/Resolved with Sequelae]

NARRATIVE: CASE EVENT DATE: 20180926
